FAERS Safety Report 7825403-4 (Version None)
Quarter: 2011Q4

REPORT INFORMATION
  Report Type: 
  Country: None (occurrence: None)
  Receive Date: 20111019
  Receipt Date: 20111011
  Transmission Date: 20120403
  Serious: Yes (Death, Hospitalization, Other)
  Sender: FDA-Public Use
  Company Number: HU-JNJFOC-20110700638

PATIENT
  Age: 40 Year
  Sex: Male

DRUGS (16)
  1. FENTANYL [Suspect]
  2. CISPLATIN [Suspect]
     Indication: CHEMOTHERAPY
  3. AMITRIPTYLINE HCL [Suspect]
     Indication: PAIN
  4. MORPHINE [Suspect]
     Indication: CANCER PAIN
     Route: 058
  5. MS CONTIN [Suspect]
     Route: 048
  6. HYDROMORPHONE HCL [Suspect]
     Indication: CANCER PAIN
     Dates: start: 20100401, end: 20100601
  7. FENTANYL [Suspect]
     Indication: CANCER PAIN
  8. FENTANYL [Suspect]
     Dates: end: 20101001
  9. FENTANYL [Suspect]
  10. FENTANYL [Suspect]
     Dates: end: 20100401
  11. FENTANYL [Suspect]
     Dates: start: 20100601
  12. NSAID [Suspect]
     Indication: PAIN
  13. MS CONTIN [Suspect]
     Indication: CANCER PAIN
     Route: 048
  14. MS CONTIN [Suspect]
     Route: 048
  15. MS CONTIN [Suspect]
     Route: 048
  16. GEMCITABINE HYDROCHLORIDE [Suspect]
     Indication: CHEMOTHERAPY

REACTIONS (12)
  - HEPATIC ENZYME INCREASED [None]
  - CONVULSION [None]
  - ANAEMIA [None]
  - HALLUCINATION [None]
  - HYPOTENSION [None]
  - JAUNDICE [None]
  - THERAPEUTIC RESPONSE DECREASED [None]
  - DISORIENTATION [None]
  - URINARY RETENTION [None]
  - COMA [None]
  - WEIGHT DECREASED [None]
  - NEOPLASM PROGRESSION [None]
